FAERS Safety Report 25779959 (Version 1)
Quarter: 2025Q3

REPORT INFORMATION
  Report Type: Spontaneous
  Country: JP (occurrence: JP)
  Receive Date: 20250909
  Receipt Date: 20250909
  Transmission Date: 20251020
  Serious: Yes (Death)
  Sender: MALLINCKRODT
  Company Number: JP-MALLINCKRODT-MNK202505421

PATIENT
  Age: 68 Year
  Sex: Male
  Weight: 60 kg

DRUGS (1)
  1. NITRIC OXIDE [Suspect]
     Active Substance: NITRIC OXIDE
     Indication: Pulmonary hypertension
     Route: 055
     Dates: start: 20250815, end: 20250825

REACTIONS (3)
  - Pulmonary hypertension [Fatal]
  - Cardiac disorder [Fatal]
  - Sepsis [Fatal]
